FAERS Safety Report 20877674 (Version 1)
Quarter: 2022Q2

REPORT INFORMATION
  Report Type: Spontaneous
  Country: US (occurrence: US)
  Receive Date: 20220526
  Receipt Date: 20220526
  Transmission Date: 20220720
  Serious: No
  Sender: FDA-Public Use
  Company Number: US-Prasco Laboratories-PRAS20220146

PATIENT
  Age: 73 Year
  Sex: Female

DRUGS (1)
  1. ESTRADIOL [Suspect]
     Active Substance: ESTRADIOL
     Indication: Dysuria
     Dosage: UNKNOWN
     Route: 067

REACTIONS (4)
  - Application site discharge [Unknown]
  - Drug ineffective [Unknown]
  - Product use in unapproved indication [None]
  - Wrong technique in product usage process [None]
